FAERS Safety Report 8358513-6 (Version None)
Quarter: 2012Q2

REPORT INFORMATION
  Report Type: 
  Country: None (occurrence: None)
  Receive Date: 20120514
  Receipt Date: 20120502
  Transmission Date: 20120825
  Serious: Yes (Hospitalization, Other)
  Sender: FDA-Public Use
  Company Number: US-ACTELION-A-US2009-26955

PATIENT

DRUGS (1)
  1. TRACLEER [Suspect]
     Indication: PULMONARY ARTERIAL HYPERTENSION
     Dosage: 31.25 MG, BID
     Route: 048
     Dates: start: 20080703

REACTIONS (11)
  - HEPATIC CIRRHOSIS [None]
  - LIVER TRANSPLANT [None]
  - BIOPSY LIVER [None]
  - HEPATOMEGALY [None]
  - PLATELET COUNT DECREASED [None]
  - PORTOPULMONARY HYPERTENSION [None]
  - VIRAL UPPER RESPIRATORY TRACT INFECTION [None]
  - ASCITES [None]
  - NODULAR REGENERATIVE HYPERPLASIA [None]
  - PYREXIA [None]
  - SPLENOMEGALY [None]
